FAERS Safety Report 18966239 (Version 2)
Quarter: 2021Q2

REPORT INFORMATION
  Report Type: Other
  Country: US (occurrence: US)
  Receive Date: 20210303
  Receipt Date: 20210417
  Transmission Date: 20210717
  Serious: Yes (Hospitalization, Disabling, Congenital Anomaly)
  Sender: FDA-Public Use
  Company Number: US-ROCHE-2775259

PATIENT
  Age: 0 Day
  Sex: Female
  Weight: 3.18 kg

DRUGS (2)
  1. OCRELIZUMAB. [Suspect]
     Active Substance: OCRELIZUMAB
     Indication: MULTIPLE SCLEROSIS
     Route: 064
     Dates: start: 20200217, end: 20200217
  2. HEPATITIS B VACCINE [Concomitant]
     Active Substance: HEPATITIS B VIRUS VACCINE
     Dates: start: 20210203

REACTIONS (2)
  - Congenital knee deformity [Recovering/Resolving]
  - Foetal exposure during pregnancy [Unknown]

NARRATIVE: CASE EVENT DATE: 20210203
